FAERS Safety Report 18128188 (Version 1)
Quarter: 2020Q3

REPORT INFORMATION
  Report Type: Spontaneous
  Country: CN (occurrence: CN)
  Receive Date: 20200810
  Receipt Date: 20200810
  Transmission Date: 20201103
  Serious: Yes (Other)
  Sender: FDA-Public Use
  Company Number: CN-009507513-2008CHN000678

PATIENT
  Age: 66 Year
  Sex: Female

DRUGS (2)
  1. TIENAM [Suspect]
     Active Substance: CILASTATIN SODIUM\IMIPENEM
     Indication: INFECTION
     Dosage: 1 GRAM, TID
     Route: 041
     Dates: start: 20200710, end: 20200710
  2. SODIUM CHLORIDE. [Suspect]
     Active Substance: SODIUM CHLORIDE
     Dosage: 100 MILLILITER, Q8H
     Route: 041
     Dates: start: 20200710, end: 20200710

REACTIONS (11)
  - Pneumonia [Unknown]
  - Somnolence [Recovering/Resolving]
  - Urine output decreased [Recovering/Resolving]
  - Breath sounds abnormal [Unknown]
  - Dysarthria [Recovering/Resolving]
  - Urine output increased [Unknown]
  - Flushing [Recovering/Resolving]
  - Rales [Unknown]
  - Sinus tachycardia [Unknown]
  - Photophobia [Unknown]
  - Heart rate increased [Unknown]

NARRATIVE: CASE EVENT DATE: 20200710
